FAERS Safety Report 6829217-3 (Version None)
Quarter: 2010Q2

REPORT INFORMATION
  Report Type: 
  Country: None (occurrence: None)
  Receive Date: 20100623
  Receipt Date: 20100614
  Transmission Date: 20101027
  Serious: Yes (Other)
  Sender: FDA-Public Use
  Company Number: ES-IGSA-IG683

PATIENT
  Age: 34 Year
  Sex: Male

DRUGS (1)
  1. FLEBOGAMMA 5%, HUMAN NORMAL IMMUNOGLOBULIN [Suspect]
     Indication: IMMUNODEFICIENCY COMMON VARIABLE
     Dosage: IV
     Route: 042
     Dates: start: 20100120

REACTIONS (5)
  - DYSPHONIA [None]
  - HYPERSENSITIVITY [None]
  - INTRACRANIAL PRESSURE INCREASED [None]
  - ODYNOPHAGIA [None]
  - ORAL PRURITUS [None]
